FAERS Safety Report 17620382 (Version 1)
Quarter: 2020Q2

REPORT INFORMATION
  Report Type: Other
  Country: FR (occurrence: FR)
  Receive Date: 20200403
  Receipt Date: 20200403
  Transmission Date: 20200713
  Serious: Yes (Life-Threatening, Hospitalization)
  Sender: FDA-Public Use
  Company Number: FR-DENTSPLY-2020SCDP000114

PATIENT
  Age: 69 Year
  Sex: Female
  Weight: 70 kg

DRUGS (5)
  1. PROPOFOL LIPURO [Suspect]
     Active Substance: PROPOFOL
     Indication: ANAESTHESIA
     Dosage: 0.6 MICROGRAM
     Route: 042
     Dates: start: 20180921, end: 20180921
  2. XYLOCAINE WITH ADRENALINE (EPINEPHRINE) [Suspect]
     Active Substance: EPINEPHRINE BITARTRATE\LIDOCAINE HYDROCHLORIDE
     Indication: LOCAL ANAESTHESIA
     Dosage: UNK
     Route: 042
     Dates: start: 20180921, end: 20180921
  3. DROLEPTAN [Suspect]
     Active Substance: DROPERIDOL
     Indication: PROPHYLAXIS OF NAUSEA AND VOMITING
     Dosage: 1.25 MILLIGRAM, TOTAL, DROLEPTAN 1.25 MG/2.5 ML, SOLUTION INJECTABLE
     Route: 042
     Dates: start: 20180921, end: 20180921
  4. MIDAZOLAM MYLAN [Suspect]
     Active Substance: MIDAZOLAM HYDROCHLORIDE
     Indication: ANAESTHESIA
     Dosage: 1 MILLIGRAM, TOTAL, MIDAZOLAM MYLAN 1 MG/ML, SOLUTION INJECTABLE (IM-IV) OU RECTALE
     Route: 042
     Dates: start: 20180921, end: 20180921
  5. VANCOMYCINE MYLAN [VANCOMYCIN] [Suspect]
     Active Substance: VANCOMYCIN
     Indication: PROPHYLAXIS
     Dosage: 1000 MILLIGRAM, TOTAL, VANCOMYCIN MYLAN 1 G, POWDER FOR SOLUTION FOR INFUSION
     Route: 042
     Dates: start: 20180921, end: 20180921

REACTIONS (5)
  - Oxygen saturation decreased [Recovered/Resolved]
  - Hypotension [Recovered/Resolved]
  - Bronchospasm [Recovered/Resolved]
  - Anaphylactic shock [Recovered/Resolved]
  - Tachycardia [Recovered/Resolved]

NARRATIVE: CASE EVENT DATE: 20180921
